FAERS Safety Report 9877901 (Version 1)
Quarter: 2014Q1

REPORT INFORMATION
  Report Type: Spontaneous
  Country: US (occurrence: US)
  Receive Date: 20140206
  Receipt Date: 20140206
  Transmission Date: 20141002
  Serious: Yes (Hospitalization)
  Sender: FDA-Public Use
  Company Number: US-SA-2014SA013318

PATIENT
  Age: 12 Month
  Sex: Female

DRUGS (2)
  1. CEREZYME [Suspect]
     Indication: GAUCHER^S DISEASE
     Dosage: DOSE:600 UNIT(S)
     Route: 042
     Dates: start: 201306
  2. CEREZYME [Suspect]
     Indication: GAUCHER^S DISEASE
     Dosage: 400 UNITS WEEKLY ALTERNATING WITH 800 UNITS WEEKLY
     Route: 042

REACTIONS (1)
  - Enterobacter sepsis [Unknown]
